FAERS Safety Report 15703816 (Version 1)
Quarter: 2018Q4

REPORT INFORMATION
  Report Type: Spontaneous
  Country: US (occurrence: US)
  Receive Date: 20181210
  Receipt Date: 20181210
  Transmission Date: 20190205
  Serious: No
  Sender: FDA-Public Use
  Company Number: US-GLAXOSMITHKLINE-US2018217517

PATIENT
  Age: 55 Year
  Sex: Female

DRUGS (1)
  1. ALLI [Suspect]
     Active Substance: ORLISTAT
     Indication: WEIGHT LOSS DIET
     Dosage: UNK
     Dates: start: 20181116

REACTIONS (4)
  - Erythema [Unknown]
  - Rash erythematous [Unknown]
  - Skin papilloma [Unknown]
  - Rash [Unknown]

NARRATIVE: CASE EVENT DATE: 20181130
